FAERS Safety Report 10058304 (Version 1)
Quarter: 2014Q2

REPORT INFORMATION
  Report Type: Spontaneous
  Country: US (occurrence: None)
  Receive Date: 20140403
  Receipt Date: 20140403
  Transmission Date: 20141212
  Serious: Yes (Hospitalization)
  Sender: FDA-Public Use
  Company Number: None

PATIENT
  Age: 2 Year
  Sex: Female
  Weight: 11.8 kg

DRUGS (4)
  1. DEXAMETHASONE [Suspect]
     Dates: end: 20131009
  2. MERCAPTOPURINE [Concomitant]
     Dates: end: 20131007
  3. METHOTREXATE [Concomitant]
     Dosage: IT AND RECEIVED 11.5 MG PO - PO DOSE DECREASED.
     Dates: end: 20130813
  4. VINCRISTINE SULFATE [Suspect]
     Dates: end: 20131008

REACTIONS (15)
  - Pneumatosis intestinalis [None]
  - Lymphopenia [None]
  - Malnutrition [None]
  - Gastrointestinal infection [None]
  - Rhinovirus infection [None]
  - Viral infection [None]
  - Malaise [None]
  - Pyrexia [None]
  - Diarrhoea [None]
  - Vomiting [None]
  - Failure to thrive [None]
  - Abdominal distension [None]
  - Herpes simplex [None]
  - Metabolic acidosis [None]
  - Immunodeficiency [None]
